FAERS Safety Report 15216196 (Version 2)
Quarter: 2018Q3

REPORT INFORMATION
  Report Type: Spontaneous
  Country: PL (occurrence: PL)
  Receive Date: 20180730
  Receipt Date: 20180730
  Transmission Date: 20181010
  Serious: Yes (Hospitalization)
  Sender: FDA-Public Use
  Company Number: PHHY2018PL051951

PATIENT
  Age: 45 Year
  Sex: Male

DRUGS (2)
  1. CICLOSPORIN [Suspect]
     Active Substance: CYCLOSPORINE
     Indication: NEPHROTIC SYNDROME
     Route: 065
  2. PREDNISONE. [Suspect]
     Active Substance: PREDNISONE
     Indication: NEPHROTIC SYNDROME
     Route: 065

REACTIONS (6)
  - Seizure [Recovering/Resolving]
  - Confusional state [Unknown]
  - Retrograde amnesia [Unknown]
  - Dizziness [Unknown]
  - Visual acuity reduced [Unknown]
  - Posterior reversible encephalopathy syndrome [Unknown]
